FAERS Safety Report 9034737 (Version 1)
Quarter: 2013Q1

REPORT INFORMATION
  Report Type: Spontaneous
  Country: US (occurrence: None)
  Receive Date: 20130116
  Receipt Date: 20130116
  Transmission Date: 20140127
  Serious: Yes (Other)
  Sender: FDA-Public Use
  Company Number: None

PATIENT
  Sex: Female
  Weight: 111.13 kg

DRUGS (3)
  1. NEVANAC [Suspect]
     Indication: MACULAR OEDEMA
     Dosage: 3X DAILY - DROPS IN EYES
     Dates: start: 20120615, end: 20121115
  2. NEVANAC [Suspect]
     Dosage: 3X DAILY - DROPS IN EYES
     Dates: start: 20120615, end: 20121115
  3. NEVANAC [Suspect]
     Indication: POST PROCEDURAL COMPLICATION
     Dosage: 3X DAILY - DROPS IN EYES
     Dates: start: 20120615, end: 20121115

REACTIONS (3)
  - Dizziness [None]
  - Balance disorder [None]
  - Condition aggravated [None]
